FAERS Safety Report 8530009-8 (Version None)
Quarter: 2012Q3

REPORT INFORMATION
  Report Type: 
  Country: None (occurrence: None)
  Receive Date: 20120723
  Receipt Date: 20120716
  Transmission Date: 20120928
  Serious: Yes (Hospitalization)
  Sender: FDA-Public Use
  Company Number: PHHY2012MX062252

PATIENT
  Sex: Female

DRUGS (2)
  1. IRBESARTAN AND HYDROCHLOROTHIAZIDE [Concomitant]
     Indication: HYPERTENSION
     Dosage: 1 PER DAY (150 MG)
     Dates: start: 20070101
  2. ZOLEDRONOC ACID [Suspect]
     Indication: OSTEOPOROSIS
     Dosage: 5 MG/100 ML PER YEAR
     Route: 042
     Dates: start: 20110801

REACTIONS (2)
  - THORACIC VERTEBRAL FRACTURE [None]
  - PROCEDURAL PAIN [None]
